FAERS Safety Report 7595154-2 (Version None)
Quarter: 2011Q2

REPORT INFORMATION
  Report Type: 
  Country: None (occurrence: None)
  Receive Date: 20110620
  Receipt Date: 20110329
  Transmission Date: 20111010
  Serious: Yes (Hospitalization)
  Sender: FDA-Public Use
  Company Number: UTC-006003

PATIENT
  Age: 71 Year
  Sex: Female

DRUGS (2)
  1. TYVASO [Suspect]
     Indication: COR PULMONALE CHRONIC
     Dosage: 120 MCG (30 MCG, 4 IN 1 D), INHALATION
     Route: 055
     Dates: start: 20101118
  2. DIURETICS (DIURETICS) [Concomitant]

REACTIONS (1)
  - GOUT [None]
